FAERS Safety Report 8563586-1 (Version None)
Quarter: 2012Q3

REPORT INFORMATION
  Report Type: 
  Country: None (occurrence: None)
  Receive Date: 20120803
  Receipt Date: 20120727
  Transmission Date: 20120928
  Serious: Yes (Other)
  Sender: FDA-Public Use
  Company Number: US-009507513-1207USA011449

PATIENT

DRUGS (17)
  1. POTASSIUM (UNSPECIFIED) [Concomitant]
  2. MAXALT [Suspect]
     Dosage: 10 MG, PRN
     Route: 048
     Dates: start: 20030701
  3. PRILOSEC [Concomitant]
  4. IMITREX [Concomitant]
  5. MOBIC [Concomitant]
  6. RECLAST [Concomitant]
  7. SUMATRIPTAN [Concomitant]
  8. NAMEDIA [Concomitant]
  9. TEMAZEPAM [Concomitant]
  10. VICODIN [Concomitant]
  11. ROZEREM [Concomitant]
  12. ARICEPT [Concomitant]
  13. FLEXERIL [Concomitant]
  14. LYRICA [Concomitant]
  15. NARATRIPTAN HYDROCHLORIDE [Concomitant]
  16. INDERAL [Concomitant]
  17. LIPITOR [Concomitant]

REACTIONS (5)
  - ABDOMINAL DISCOMFORT [None]
  - VITRECTOMY [None]
  - SEROTONIN SYNDROME [None]
  - RETINAL SCAR [None]
  - MIGRAINE [None]
